FAERS Safety Report 6369861-3 (Version None)
Quarter: 2009Q3

REPORT INFORMATION
  Report Type: 
  Country: None (occurrence: None)
  Receive Date: 20090923
  Receipt Date: 20071207
  Transmission Date: 20100115
  Serious: No
  Sender: FDA-Public Use
  Company Number: US-ASTRAZENECA-2006UW11376

PATIENT
  Age: 15008 Day
  Sex: Female
  Weight: 121.1 kg

DRUGS (26)
  1. SEROQUEL [Suspect]
     Indication: DEPRESSION
     Dosage: 600-900 MG
     Route: 048
     Dates: start: 20020101
  2. SEROQUEL [Suspect]
     Indication: SLEEP DISORDER
     Dosage: 600-900 MG
     Route: 048
     Dates: start: 20020101
  3. HYDROCODONE [Concomitant]
  4. ACYCLOVIR [Concomitant]
  5. DIOVAN HCT [Concomitant]
  6. FLUOXETINE [Concomitant]
  7. VERELAN [Concomitant]
  8. RANITIDINE [Concomitant]
  9. ZOLOFT [Concomitant]
  10. ACTOS [Concomitant]
  11. METFORMIN HCL [Concomitant]
  12. LEXAPRO [Concomitant]
  13. ABILIFY [Concomitant]
  14. PREDNISONE TAB [Concomitant]
  15. LORATADINE [Concomitant]
  16. HYDROXYZINE [Concomitant]
  17. SIMVASTATIN [Concomitant]
  18. PROAIR HFA [Concomitant]
  19. SULINDAC [Concomitant]
  20. CADUET [Concomitant]
  21. TRAZODONE [Concomitant]
  22. TRAMADOL HCL [Concomitant]
  23. GLIMEPIRIDE [Concomitant]
  24. REMERON [Concomitant]
  25. NORVASC [Concomitant]
  26. ADIPEX-P [Concomitant]

REACTIONS (2)
  - DIABETES MELLITUS [None]
  - HYPERTENSION [None]
